FAERS Safety Report 19264915 (Version 1)
Quarter: 2021Q2

REPORT INFORMATION
  Report Type: Spontaneous
  Country: US (occurrence: US)
  Receive Date: 20210517
  Receipt Date: 20210517
  Transmission Date: 20210717
  Serious: Yes (Other)
  Sender: FDA-Public Use
  Company Number: US-BAYER-2021-141390

PATIENT

DRUGS (1)
  1. PHILLIPS^ LIQUID GELS STOOL SOFTENER [Suspect]
     Active Substance: DOCUSATE SODIUM
     Dosage: HALF OF A LIQUID GEL
     Route: 048

REACTIONS (3)
  - Foreign body in throat [Unknown]
  - Wrong technique in product usage process [Unknown]
  - Throat irritation [Unknown]
